FAERS Safety Report 7150274-1 (Version None)
Quarter: 2010Q4

REPORT INFORMATION
  Report Type: 
  Country: None (occurrence: None)
  Receive Date: 20101207
  Receipt Date: 20101207
  Transmission Date: 20110411
  Serious: Yes (Life-Threatening, Hospitalization)
  Sender: FDA-Public Use
  Company Number: None

PATIENT
  Sex: Female
  Weight: 63.2 kg

DRUGS (7)
  1. HALDOL [Suspect]
     Indication: AGITATION
     Dosage: 5 MG X 7 IM
     Route: 030
     Dates: start: 20100201, end: 20100217
  2. RISPERDAL [Suspect]
     Indication: BIPOLAR DISORDER
     Dosage: 2 MG BID PO
     Route: 048
     Dates: start: 20100210, end: 20100219
  3. RISPERDAL [Suspect]
     Indication: BIPOLAR DISORDER
     Dosage: 2 MG BID PO
     Route: 048
     Dates: start: 20100304, end: 20100308
  4. OLANZAPINE [Suspect]
     Indication: AGITATION
     Dosage: 10 MG IM X 3; 10 MG IM X 1; OLANZAPINE ZXYDIS 10 MG PO
     Route: 030
     Dates: start: 20100217
  5. OLANZAPINE [Suspect]
     Indication: AGITATION
     Dosage: 10 MG IM X 3; 10 MG IM X 1; OLANZAPINE ZXYDIS 10 MG PO
     Route: 030
     Dates: start: 20100310
  6. OLANZAPINE [Suspect]
     Indication: AGITATION
     Dosage: 10 MG IM X 3; 10 MG IM X 1; OLANZAPINE ZXYDIS 10 MG PO
     Route: 030
     Dates: start: 20100313
  7. METOCLOPRAMIDE [Suspect]
     Indication: VOMITING
     Dosage: 5 MG PER PEG Q 6 H;
     Dates: start: 20100309, end: 20100311

REACTIONS (29)
  - ACTIVITIES OF DAILY LIVING IMPAIRED [None]
  - AGITATION [None]
  - BACK PAIN [None]
  - CATATONIA [None]
  - COUGH [None]
  - DIABETES INSIPIDUS [None]
  - DIARRHOEA [None]
  - DRUG INEFFECTIVE [None]
  - DYSPHAGIA [None]
  - DYSTONIA [None]
  - ENCEPHALITIS [None]
  - EXCORIATION [None]
  - EXTRAPYRAMIDAL DISORDER [None]
  - HYPERKINESIA [None]
  - HYPOPHAGIA [None]
  - IMMOBILE [None]
  - INSOMNIA [None]
  - MOANING [None]
  - MUSCLE RIGIDITY [None]
  - MUTISM [None]
  - NEGATIVISM [None]
  - NEUROLEPTIC MALIGNANT SYNDROME [None]
  - PNEUMONIA ASPIRATION [None]
  - POSTURING [None]
  - PUPILS UNEQUAL [None]
  - SCREAMING [None]
  - STARING [None]
  - STATUS EPILEPTICUS [None]
  - URINARY RETENTION [None]
